FAERS Safety Report 21591117 (Version 1)
Quarter: 2022Q4

REPORT INFORMATION
  Report Type: Spontaneous
  Country: US (occurrence: US)
  Receive Date: 20221114
  Receipt Date: 20221114
  Transmission Date: 20230113
  Serious: No
  Sender: FDA-Public Use
  Company Number: US-SA-SAC20221111001491

PATIENT
  Sex: Female

DRUGS (1)
  1. DUPIXENT [Suspect]
     Active Substance: DUPILUMAB
     Indication: Peripheral venous disease
     Dosage: UNK
     Route: 065

REACTIONS (2)
  - Cystitis [Not Recovered/Not Resolved]
  - Product use in unapproved indication [Unknown]
